FAERS Safety Report 6972465-2 (Version None)
Quarter: 2010Q3

REPORT INFORMATION
  Report Type: 
  Country: None (occurrence: None)
  Receive Date: 20100907
  Receipt Date: 20100825
  Transmission Date: 20110219
  Serious: Yes (Hospitalization)
  Sender: FDA-Public Use
  Company Number: 017816

PATIENT
  Sex: Male
  Weight: 108.9 kg

DRUGS (4)
  1. LACOSAMIDE [Suspect]
     Indication: CONVULSION
     Dosage: 700 MG QD ORAL, 500 MG ORAL
     Route: 048
     Dates: end: 20100801
  2. LACOSAMIDE [Suspect]
     Indication: CONVULSION
     Dosage: 700 MG QD ORAL, 500 MG ORAL
     Route: 048
     Dates: start: 20100801
  3. VITAMIN B NOS [Concomitant]
  4. VITAMIN B6 [Concomitant]

REACTIONS (4)
  - CONVULSION [None]
  - DRUG DOSE OMISSION [None]
  - OXYGEN SATURATION DECREASED [None]
  - SKIN DISCOLOURATION [None]
